FAERS Safety Report 12028284 (Version 1)
Quarter: 2016Q1

REPORT INFORMATION
  Report Type: Report from Study
  Country: US (occurrence: US)
  Receive Date: 20160207
  Receipt Date: 20160207
  Transmission Date: 20160526
  Serious: Yes (Hospitalization)
  Sender: FDA-Public Use
  Company Number: US-ABBVIE-15K-163-1493530-00

PATIENT
  Age: 38 Year
  Sex: Male
  Weight: 111.23 kg

DRUGS (4)
  1. HUMIRA [Suspect]
     Active Substance: ADALIMUMAB
     Indication: PSORIASIS
     Route: 058
     Dates: start: 201406, end: 201506
  2. TEGRETOL [Concomitant]
     Active Substance: CARBAMAZEPINE
     Indication: BIPOLAR DISORDER
  3. CEFALEXIN [Concomitant]
     Active Substance: CEPHALEXIN
     Indication: ABSCESS
     Dosage: DURATION 5 DAYS
     Dates: start: 20151026
  4. ABILIFY [Concomitant]
     Active Substance: ARIPIPRAZOLE
     Indication: BIPOLAR DISORDER

REACTIONS (1)
  - Groin abscess [Recovering/Resolving]

NARRATIVE: CASE EVENT DATE: 201505
